FAERS Safety Report 7626419-3 (Version None)
Quarter: 2011Q3

REPORT INFORMATION
  Report Type: 
  Country: None (occurrence: None)
  Receive Date: 20110721
  Receipt Date: 20110712
  Transmission Date: 20111222
  Serious: Yes (Hospitalization, Other)
  Sender: FDA-Public Use
  Company Number: US-ASTRAZENECA-2010SE46281

PATIENT
  Age: 66 Year
  Sex: Male

DRUGS (2)
  1. TOPROL-XL [Suspect]
     Route: 048
  2. CRESTOR [Suspect]
     Route: 048

REACTIONS (7)
  - MALIGNANT TUMOUR EXCISION [None]
  - PROSTATE CANCER [None]
  - MALAISE [None]
  - INFLUENZA [None]
  - FATIGUE [None]
  - NEOPLASM MALIGNANT [None]
  - NASOPHARYNGITIS [None]
